FAERS Safety Report 6559028-8 (Version None)
Quarter: 2010Q1

REPORT INFORMATION
  Report Type: 
  Country: None (occurrence: None)
  Receive Date: 20100129
  Receipt Date: 20100122
  Transmission Date: 20100710
  Serious: Yes (Other)
  Sender: FDA-Public Use
  Company Number: ZA-JNJCH-2010002278

PATIENT
  Age: 5 Year
  Sex: Female

DRUGS (1)
  1. FRESHBURST LISTERINE [Suspect]
     Indication: ACCIDENTAL EXPOSURE
     Dosage: TEXT:250ML ONE TIME
     Route: 048
     Dates: start: 20100122, end: 20100122

REACTIONS (4)
  - ABDOMINAL PAIN UPPER [None]
  - ACCIDENTAL EXPOSURE [None]
  - SOMNOLENCE [None]
  - WRONG DRUG ADMINISTERED [None]
